FAERS Safety Report 11840237 (Version 3)
Quarter: 2016Q1

REPORT INFORMATION
  Report Type: Spontaneous
  Country: US (occurrence: US)
  Receive Date: 20151216
  Receipt Date: 20160212
  Transmission Date: 20160525
  Serious: Yes (Hospitalization, Other)
  Sender: FDA-Public Use
  Company Number: US-PFIZER INC-2015431175

PATIENT
  Age: 71 Year
  Sex: Male

DRUGS (10)
  1. DILANTIN [Suspect]
     Active Substance: PHENYTOIN
     Dosage: 500 MG, DAILY (200 MG AM, 300 MG PM)
     Dates: start: 20151015
  2. DILANTIN [Suspect]
     Active Substance: PHENYTOIN
     Dosage: POTENCY: 100 MG
     Route: 048
  3. ZOLOFT [Suspect]
     Active Substance: SERTRALINE HYDROCHLORIDE
     Dosage: UNK
  4. LISINOPRIL. [Suspect]
     Active Substance: LISINOPRIL
     Dosage: UNK
  5. DILANTIN [Suspect]
     Active Substance: PHENYTOIN
     Dosage: 700 AND 800
     Route: 048
  6. SIMVASTATIN. [Suspect]
     Active Substance: SIMVASTATIN
     Dosage: UNK
  7. DILANTIN [Suspect]
     Active Substance: PHENYTOIN
     Indication: SEIZURE
     Dosage: 500 MG, DAILY
     Route: 048
  8. OXYBUTYNIN [Suspect]
     Active Substance: OXYBUTYNIN
     Dosage: UNK
  9. DILANTIN [Suspect]
     Active Substance: PHENYTOIN
     Dosage: 100 MG, 5 CAPS DAILY, DILANTIN 30 MG IN AM
     Route: 048
     Dates: start: 20111226
  10. DILANTIN [Suspect]
     Active Substance: PHENYTOIN
     Indication: SEIZURE
     Dosage: 400 MG, UNK
     Route: 042
     Dates: start: 20151029, end: 20151104

REACTIONS (15)
  - Product quality issue [Unknown]
  - Lung infection [Unknown]
  - Aspiration [Unknown]
  - Depression [Unknown]
  - Cellulitis [Unknown]
  - Confusional state [Unknown]
  - Anticonvulsant drug level decreased [Unknown]
  - Agitation [Unknown]
  - Respiratory arrest [Unknown]
  - Musculoskeletal pain [Recovering/Resolving]
  - Generalised tonic-clonic seizure [Not Recovered/Not Resolved]
  - Joint injury [Recovering/Resolving]
  - Anticonvulsant drug level above therapeutic [Unknown]
  - Dysarthria [Unknown]
  - Pneumonia aspiration [Unknown]

NARRATIVE: CASE EVENT DATE: 20151002
